FAERS Safety Report 7070238-6 (Version None)
Quarter: 2010Q4

REPORT INFORMATION
  Report Type: 
  Country: None (occurrence: None)
  Receive Date: 20101028
  Receipt Date: 20100914
  Transmission Date: 20110411
  Serious: No
  Sender: FDA-Public Use
  Company Number: US-WYE-H17584810

PATIENT
  Sex: Male
  Weight: 103.97 kg

DRUGS (10)
  1. ADVIL [Suspect]
     Indication: MUSCLE RELAXANT THERAPY
     Dosage: 800MG UNKNOWN FREQUENCY
     Route: 048
  2. ADVIL [Suspect]
     Indication: PAIN
  3. SOMA [Suspect]
     Indication: PAIN IN EXTREMITY
     Dosage: 250MG UNKNOWN FREQUENCY
     Route: 048
     Dates: start: 20100101
  4. ADVAIR DISKUS 100/50 [Concomitant]
  5. HYDROCHLOROTHIAZIDE [Concomitant]
  6. LISINOPRIL [Concomitant]
  7. OXYCODONE HCL [Concomitant]
  8. CHANTIX [Suspect]
     Indication: EX-TOBACCO USER
     Route: 048
     Dates: start: 20100901
  9. NEURONTIN [Suspect]
     Indication: BACK PAIN
     Dosage: 600 MG UNKNOWN FREQUENCY
     Route: 048
     Dates: start: 20100101
  10. NEURONTIN [Suspect]
     Indication: INTERVERTEBRAL DISC PROTRUSION

REACTIONS (2)
  - DIZZINESS [None]
  - DRUG INTERACTION [None]
